FAERS Safety Report 19071732 (Version 1)
Quarter: 2021Q1

REPORT INFORMATION
  Report Type: Spontaneous
  Country: SE (occurrence: SE)
  Receive Date: 20210330
  Receipt Date: 20210330
  Transmission Date: 20210420
  Serious: Yes (Death, Hospitalization)
  Sender: FDA-Public Use
  Company Number: SE-BIOGEN-2017BI00387861

PATIENT
  Sex: Male

DRUGS (1)
  1. NUSINERSEN [Suspect]
     Active Substance: NUSINERSEN
     Indication: SPINAL MUSCULAR ATROPHY
     Dosage: LOADING DOSE FOR THE FIRST 4 DOSES, AND THEN MAINTENANCE DOSE FOR THE EVERY 4 MONTH DOSES
     Route: 037
     Dates: start: 20170216, end: 20170216

REACTIONS (2)
  - Spinal muscular atrophy [Fatal]
  - Respiratory failure [Fatal]
